FAERS Safety Report 5344184-X (Version None)
Quarter: 2007Q2

REPORT INFORMATION
  Report Type: 
  Country: None (occurrence: None)
  Receive Date: 20070531
  Receipt Date: 20070531
  Transmission Date: 20071010
  Serious: Yes (Hospitalization)
  Sender: FDA-Public Use
  Company Number: None

PATIENT
  Sex: Female
  Weight: 90 kg

DRUGS (4)
  1. CYCLOPHOSPHAMIDE [Suspect]
     Dosage: 4200 MG
  2. DOXORUBICIN HYDROCHLORIDE [Suspect]
     Dosage: 264 MG
  3. G-CSF (FILGRASTIM, AMGEN) [Suspect]
     Dosage: 2700 MCG
  4. BACTRIM DS [Suspect]
     Dosage: 9600 MG

REACTIONS (6)
  - FEBRILE NEUTROPENIA [None]
  - GASTROINTESTINAL DISORDER [None]
  - LOSS OF CONSCIOUSNESS [None]
  - NAUSEA [None]
  - PULMONARY OEDEMA [None]
  - TACHYPNOEA [None]
